FAERS Safety Report 23643460 (Version 3)
Quarter: 2024Q2

REPORT INFORMATION
  Report Type: Spontaneous
  Country: CA (occurrence: CA)
  Receive Date: 20240318
  Receipt Date: 20240510
  Transmission Date: 20240716
  Serious: Yes (Other)
  Sender: FDA-Public Use
  Company Number: CA-PFIZER INC-202300439779

PATIENT
  Age: 57 Year
  Sex: Male
  Weight: 81.633 kg

DRUGS (3)
  1. ABRILADA [Suspect]
     Active Substance: ADALIMUMAB-AFZB
     Indication: Crohn^s disease
     Dosage: 1 DF, WEEK 0 - 160 MG, WEEK 2 - 80 MG, THEN 40 MG EVERY OTHER WEEK STARTING WEEK 4 - PREFILLED PEN
     Route: 058
     Dates: start: 20230829, end: 2023
  2. ABRILADA [Suspect]
     Active Substance: ADALIMUMAB-AFZB
     Dosage: 80 MG, WEEKLY, PREFILLED PEN
     Route: 058
     Dates: start: 2023
  3. ABRILADA [Suspect]
     Active Substance: ADALIMUMAB-AFZB
     Dosage: 80 MG,EVERY 5 DAYS, REINDUCTION WITH 1 DOSE OF 160MG
     Route: 058
     Dates: start: 2024

REACTIONS (5)
  - Fistula [Not Recovered/Not Resolved]
  - Drug level decreased [Unknown]
  - Abscess [Recovered/Resolved]
  - Off label use [Unknown]
  - Swelling [Not Recovered/Not Resolved]
